FAERS Safety Report 10637444 (Version 1)
Quarter: 2014Q4

REPORT INFORMATION
  Report Type: Spontaneous
  Country: US (occurrence: None)
  Receive Date: 20141204
  Receipt Date: 20141204
  Transmission Date: 20150529
  Serious: No
  Sender: FDA-Public Use
  Company Number: None

PATIENT
  Age: 47 Year
  Sex: Female

DRUGS (1)
  1. COPAXONE [Suspect]
     Active Substance: GLATIRAMER ACETATE
     Indication: MULTIPLE SCLEROSIS
     Dosage: 40 MG TWICE IN A WEEK, SC.
     Dates: start: 20141007

REACTIONS (3)
  - Gait disturbance [None]
  - Therapy change [None]
  - Multiple sclerosis relapse [None]

NARRATIVE: CASE EVENT DATE: 20141007
